FAERS Safety Report 10663831 (Version 4)
Quarter: 2018Q1

REPORT INFORMATION
  Report Type: Spontaneous
  Country: US (occurrence: US)
  Receive Date: 20141219
  Receipt Date: 20180228
  Transmission Date: 20180508
  Serious: Yes (Death, Other)
  Sender: FDA-Public Use
  Company Number: US-009507513-1412USA008560

PATIENT
  Age: 67 Year
  Sex: Female

DRUGS (22)
  1. AVONEX [Concomitant]
     Active Substance: INTERFERON BETA-1A
  2. ESCITALOPRAM [Concomitant]
     Active Substance: ESCITALOPRAM OXALATE
  3. TEA [Concomitant]
     Active Substance: TEA LEAF
  4. NOXAFIL [Suspect]
     Active Substance: POSACONAZOLE
     Dosage: 300 MG DAILY
     Route: 048
  5. DIMETHYL SULFONE (+) GLUCOSAMINE [Concomitant]
  6. VITAMINS (UNSPECIFIED) [Concomitant]
     Active Substance: VITAMINS
     Dosage: 1 DAILY
  7. SCIENCE BASED HEALTH MACULAR PROTECT [Concomitant]
  8. NOXAFIL [Suspect]
     Active Substance: POSACONAZOLE
     Indication: BRONCHOPULMONARY ASPERGILLOSIS
     Dosage: 100 MG (1 TABLET) TWICE A DAY
     Route: 048
     Dates: start: 201411, end: 20141216
  9. ASTEPRO [Concomitant]
     Active Substance: AZELASTINE HYDROCHLORIDE
  10. SINGULAIR [Concomitant]
     Active Substance: MONTELUKAST SODIUM
     Route: 048
  11. LEVOTHYROXINE SODIUM. [Concomitant]
     Active Substance: LEVOTHYROXINE SODIUM
     Route: 048
  12. ASHWAGANDHA [Concomitant]
     Active Substance: HERBALS
  13. CALCIUM (UNSPECIFIED) [Concomitant]
     Active Substance: CALCIUM
  14. GAMUNEX [Concomitant]
     Active Substance: HUMAN IMMUNOGLOBULIN G
     Route: 042
  15. TYLENOL [Concomitant]
     Active Substance: ACETAMINOPHEN
  16. BENADRYL [Concomitant]
     Active Substance: DIPHENHYDRAMINE HYDROCHLORIDE
  17. BACOPA [Concomitant]
  18. DONEPEZIL HYDROCHLORIDE. [Concomitant]
     Active Substance: DONEPEZIL HYDROCHLORIDE
  19. LYRICA [Concomitant]
     Active Substance: PREGABALIN
  20. OMEGA-3 ACIDS [Concomitant]
     Active Substance: OMEGA-3 FATTY ACIDS
  21. BIOTAN BASOSAN [Concomitant]
  22. CRANBERRY. [Concomitant]
     Active Substance: CRANBERRY
     Route: 048

REACTIONS (3)
  - Blister [Not Recovered/Not Resolved]
  - Blister rupture [Not Recovered/Not Resolved]
  - Death [Fatal]

NARRATIVE: CASE EVENT DATE: 20141213
